FAERS Safety Report 9837805 (Version 3)
Quarter: 2014Q1

REPORT INFORMATION
  Report Type: Report from Study
  Country: FR (occurrence: FR)
  Receive Date: 20140123
  Receipt Date: 20140206
  Transmission Date: 20141002
  Serious: Yes (Other)
  Sender: FDA-Public Use
  Company Number: PHHO2013FR016707

PATIENT
  Age: 75 Year
  Sex: Female
  Weight: 63 kg

DRUGS (11)
  1. ACLASTA/ZOLEDRONATE [Suspect]
     Indication: OSTEOPOROSIS
     Dosage: UNK UKN, UNK
     Route: 042
     Dates: start: 20111215
  2. ACLASTA/ZOLEDRONATE [Suspect]
     Dosage: UNK UKN, UNK
     Route: 042
     Dates: start: 201201
  3. ACLASTA/ZOLEDRONATE [Suspect]
     Dosage: UNK UKN, UNK
     Route: 042
     Dates: start: 201305
  4. CHONDRO.SUL.SOD [Concomitant]
     Dosage: UNK UKN, UNK
     Dates: start: 2010, end: 201202
  5. NATECAL D3 [Concomitant]
     Dosage: UNK UKN, UNK
     Dates: start: 2011, end: 201202
  6. SEROPLEX [Concomitant]
     Indication: DEPRESSION
     Dosage: UNK UKN, QD
     Dates: start: 2009
  7. SEROPLEX [Concomitant]
     Dosage: UNK
     Dates: start: 201101, end: 201203
  8. SEROPLEX [Concomitant]
     Dosage: UNK
     Dates: start: 2013
  9. UVEDOSE [Concomitant]
     Dosage: UNK UKN, UNK
     Dates: start: 2010
  10. LAMALINE [Concomitant]
     Dosage: UNK UKN, UNK
     Dates: start: 201312
  11. RYTHMOL ^BIOSEDRA^ [Concomitant]
     Indication: TACHYCARDIA
     Dosage: UNK UKN, BID
     Dates: start: 2009, end: 201311

REACTIONS (5)
  - Atrial fibrillation [Recovering/Resolving]
  - Tachycardia [Recovering/Resolving]
  - Pallor [Recovering/Resolving]
  - Palpitations [Recovering/Resolving]
  - Osteoarthritis [Not Recovered/Not Resolved]
